FAERS Safety Report 8541334-9 (Version None)
Quarter: 2012Q3

REPORT INFORMATION
  Report Type: 
  Country: None (occurrence: None)
  Receive Date: 20120726
  Receipt Date: 20120718
  Transmission Date: 20120928
  Serious: No
  Sender: FDA-Public Use
  Company Number: US-BAYER-2012-072863

PATIENT

DRUGS (2)
  1. ALEVE (CAPLET) [Suspect]
     Indication: MYALGIA
  2. ALEVE (CAPLET) [Suspect]
     Indication: BACK PAIN

REACTIONS (2)
  - MYALGIA [None]
  - BACK PAIN [None]
